FAERS Safety Report 7561761-6 (Version None)
Quarter: 2011Q2

REPORT INFORMATION
  Report Type: 
  Country: None (occurrence: None)
  Receive Date: 20110621
  Receipt Date: 20110614
  Transmission Date: 20111010
  Serious: Yes (Hospitalization, Other)
  Sender: FDA-Public Use
  Company Number: HR-ABBOTT-11P-216-0717170-00

PATIENT
  Sex: Male
  Weight: 95 kg

DRUGS (10)
  1. SEVOFLURANE [Suspect]
     Indication: GENERAL ANAESTHESIA
     Dosage: SHORT INHALATORY ANESTHESIA
     Route: 055
     Dates: start: 20110323, end: 20110323
  2. PROPOFOL [Interacting]
     Indication: GENERAL ANAESTHESIA
     Dosage: 200 MG INTRO, THEN 100MG Q 15 MIN X3
     Route: 042
     Dates: start: 20110323, end: 20110323
  3. PROPOFOL [Interacting]
     Indication: INDUCTION AND MAINTENANCE OF ANAESTHESIA
  4. PANTOPRAZOLE [Concomitant]
     Indication: PRODUCT USED FOR UNKNOWN INDICATION
     Dates: start: 20050101
  5. PROPOFOL [Interacting]
  6. VOLTAREN [Concomitant]
     Indication: PAIN PROPHYLAXIS
     Dosage: 1 AMPOULE GIVEN ONCE
  7. SUFENTA PRESERVATIVE FREE [Interacting]
     Indication: GENERAL ANAESTHESIA
     Dosage: 15 MCG FOR INTRO, 10 MCG 15 MIN LATER
     Route: 042
     Dates: start: 20110323, end: 20110323
  8. ENOXAPARIN SODIUM [Concomitant]
     Indication: HAEMODIALYSIS
     Dates: start: 20110324
  9. CLIVARIN [Concomitant]
     Dosage: 1432
     Dates: start: 20110323, end: 20110324
  10. LENDACIN [Concomitant]
     Indication: PROPHYLAXIS
     Route: 042
     Dates: start: 20110323, end: 20110405

REACTIONS (5)
  - RENAL FAILURE ACUTE [None]
  - RENAL TUBULAR NECROSIS [None]
  - RENAL FAILURE [None]
  - BLOOD CREATININE INCREASED [None]
  - DRUG INTERACTION [None]
